FAERS Safety Report 5007508-9 (Version None)
Quarter: 2006Q2

REPORT INFORMATION
  Report Type: 
  Country: None (occurrence: None)
  Receive Date: 20060403
  Receipt Date: 20051004
  Transmission Date: 20061013
  Serious: Yes (Other)
  Sender: FDA-Public Use
  Company Number: 21073

PATIENT
  Age: 33 Year
  Sex: Male
  Weight: 81.6475 kg

DRUGS (4)
  1. ADRIAMYCIN (DOXORUBICIN) INJ. USP 10MG/5ML - BEDFORD LABS, INC. [Suspect]
     Indication: RHABDOMYOSARCOMA
  2. COREG [Concomitant]
  3. DIOVAN [Concomitant]
  4. LASIX [Concomitant]

REACTIONS (1)
  - CARDIOMYOPATHY [None]
